FAERS Safety Report 8922270 (Version 1)
Quarter: 2012Q4

REPORT INFORMATION
  Report Type: Spontaneous
  Country: TR (occurrence: None)
  Receive Date: 20121109
  Receipt Date: 20121109
  Transmission Date: 20130627
  Serious: Yes (Life-Threatening)
  Sender: FDA-Public Use
  Company Number: 2012S1000444

PATIENT
  Age: 63 Year
  Sex: Male
  Weight: 82 kg

DRUGS (11)
  1. CUBICIN [Suspect]
     Indication: SOFT TISSUE INFECTION
     Route: 042
     Dates: start: 20120507
  2. INSULIN [Concomitant]
  3. TIENAM [Concomitant]
  4. DIPYRIDAMOLE [Concomitant]
  5. NEURONTIN [Concomitant]
  6. METOPROLOL [Concomitant]
  7. SUCCINATE [Concomitant]
  8. ROXATIDINE ACETATE [Concomitant]
  9. ZYVOXID [Concomitant]
  10. ANTIBIOTICS [Concomitant]
  11. ALL OTHER THERAPEUTIC PRODUCTS [Concomitant]

REACTIONS (5)
  - Eosinophilic pneumonia [None]
  - White blood cell count increased [None]
  - Haematocrit decreased [None]
  - Blood bilirubin increased [None]
  - Bilirubin conjugated increased [None]
